FAERS Safety Report 5361531-3 (Version None)
Quarter: 2007Q2

REPORT INFORMATION
  Report Type: 
  Country: None (occurrence: None)
  Receive Date: 20070619
  Receipt Date: 20070606
  Transmission Date: 20071010
  Serious: Yes (Hospitalization)
  Sender: FDA-Public Use
  Company Number: PHHO2007JP09656

PATIENT
  Age: 78 Year
  Sex: Female

DRUGS (5)
  1. DIOVAN [Suspect]
     Dosage: 80 MG DAILY DOSE
     Route: 048
     Dates: start: 20030320, end: 20050216
  2. NICARDIPINE HYDROCHLORIDE [Suspect]
     Dosage: 80 MG DAILY
     Route: 048
     Dates: start: 20040206, end: 20050216
  3. DEPAS [Suspect]
     Dates: start: 20040129, end: 20050216
  4. NORVASC [Concomitant]
  5. MERISLON [Concomitant]

REACTIONS (5)
  - CHEST DISCOMFORT [None]
  - DYSPNOEA [None]
  - LUNG NEOPLASM MALIGNANT [None]
  - METASTASES TO CENTRAL NERVOUS SYSTEM [None]
  - SURGERY [None]
